FAERS Safety Report 9173597 (Version 2)
Quarter: 2013Q1

REPORT INFORMATION
  Report Type: Spontaneous
  Country: CA (occurrence: None)
  Receive Date: 20130211
  Receipt Date: 20130213
  Transmission Date: 20140127
  Serious: Yes (Other)
  Sender: FDA-Public Use
  Company Number: 2013034562

PATIENT
  Age: 54 Year
  Sex: Female

DRUGS (1)
  1. PRIVIGEN (IMMUNE GLOBULIN INTRAVENOUS (HUMAN) 10% LIQUID) [Suspect]
     Route: 042
     Dates: start: 20121220, end: 20121220

REACTIONS (6)
  - Product contamination microbial [None]
  - Chills [None]
  - Nausea [None]
  - Blood pressure increased [None]
  - Pyrexia [None]
  - Staphylococcus test positive [None]
